FAERS Safety Report 20826122 (Version 1)
Quarter: 2022Q2

REPORT INFORMATION
  Report Type: Spontaneous
  Country: IT (occurrence: IT)
  Receive Date: 20220513
  Receipt Date: 20220513
  Transmission Date: 20220721
  Serious: Yes (Other)
  Sender: FDA-Public Use
  Company Number: IT-SLATE RUN PHARMACEUTICALS-22IT001076

PATIENT

DRUGS (6)
  1. VANCOMYCIN HYDROCHLORIDE [Suspect]
     Active Substance: VANCOMYCIN HYDROCHLORIDE
     Indication: Staphylococcal infection
     Dosage: UNK
  2. UNSPECIFIED INGREDIENT [Concomitant]
     Active Substance: UNSPECIFIED INGREDIENT
     Indication: COVID-19
  3. ACETAMINOPHEN [Concomitant]
     Active Substance: ACETAMINOPHEN
     Indication: COVID-19
  4. DEXAMETHASONE [Concomitant]
     Active Substance: DEXAMETHASONE
     Indication: COVID-19
     Dosage: 8 MILLIGRAM, QD
     Route: 042
  5. OXACILLIN [Concomitant]
     Active Substance: OXACILLIN SODIUM
     Indication: Staphylococcal infection
  6. PIPERACILLIN SODIUM\TAZOBACTAM SODIUM [Concomitant]
     Active Substance: PIPERACILLIN SODIUM\TAZOBACTAM SODIUM
     Indication: Escherichia infection

REACTIONS (8)
  - Premature rupture of membranes [Recovered/Resolved]
  - Jugular vein thrombosis [Recovered/Resolved]
  - Postpartum haemorrhage [Recovered/Resolved]
  - Psychomotor hyperactivity [Recovered/Resolved]
  - Anxiety [Recovered/Resolved]
  - Pulmonary embolism [Recovered/Resolved]
  - Pulmonary infarction [Recovered/Resolved]
  - Maternal exposure during pregnancy [Recovered/Resolved]
